FAERS Safety Report 6394312-2 (Version None)
Quarter: 2009Q4

REPORT INFORMATION
  Report Type: 
  Country: None (occurrence: None)
  Receive Date: 20091006
  Receipt Date: 20090925
  Transmission Date: 20100525
  Serious: Yes (Hospitalization, Other)
  Sender: FDA-Public Use
  Company Number: 2009EU003558

PATIENT
  Age: 74 Year
  Sex: Male

DRUGS (1)
  1. VESICARE [Suspect]

REACTIONS (3)
  - ANXIETY [None]
  - DEPRESSION [None]
  - PITUITARY TUMOUR [None]
